FAERS Safety Report 6173919-1 (Version None)
Quarter: 2009Q2

REPORT INFORMATION
  Report Type: 
  Country: None (occurrence: None)
  Receive Date: 20090430
  Receipt Date: 20090427
  Transmission Date: 20091009
  Serious: No
  Sender: FDA-Public Use
  Company Number: JP-EISAI INC.-E2090-00719-SPO-JP

PATIENT
  Age: 47 Year
  Sex: Female

DRUGS (1)
  1. ZONEGRAN [Suspect]
     Indication: DRUG USE FOR UNKNOWN INDICATION
     Dosage: UNKNOWN

REACTIONS (1)
  - HISTIOCYTOSIS HAEMATOPHAGIC [None]
